FAERS Safety Report 7530838-3 (Version None)
Quarter: 2011Q2

REPORT INFORMATION
  Report Type: 
  Country: None (occurrence: None)
  Receive Date: 20110607
  Receipt Date: 20110525
  Transmission Date: 20111010
  Serious: Yes (Other)
  Sender: FDA-Public Use
  Company Number: JP-MYLANLABS-2011S1011146

PATIENT
  Age: 71 Year
  Sex: Male

DRUGS (5)
  1. FLUOROURACIL [Suspect]
     Indication: COLORECTAL CANCER METASTATIC
     Dosage: 500MG OVER 15 MIN ON DAYS 1 AND 2 OF A 2-WEEK COURSE
     Route: 065
     Dates: start: 20080701
  2. FLUOROURACIL [Suspect]
     Dosage: 750MG ON DAY 1 AND 2 OF A 2-WEEK COURSE
     Route: 065
     Dates: start: 20080701
  3. LEUCOVORIN CALCIUM [Suspect]
     Indication: COLORECTAL CANCER METASTATIC
     Dosage: 150MG DAYS 1 AND 2 OF A 2-WEEK COURSE
     Route: 065
     Dates: start: 20080701
  4. BEVACIZUMAB [Concomitant]
     Indication: COLORECTAL CANCER METASTATIC
     Dosage: 200MG ON DAY 1 OF A 2-WEEK COURSE
     Route: 065
     Dates: start: 20080701
  5. OXALIPLATIN [Suspect]
     Indication: COLORECTAL CANCER METASTATIC
     Dosage: 100MG ON DAY 1 OVER A 2-WEEK COURSE
     Route: 065
     Dates: start: 20080701

REACTIONS (5)
  - RASH PRURITIC [None]
  - PYREXIA [None]
  - EOSINOPHIL COUNT INCREASED [None]
  - INTERSTITIAL LUNG DISEASE [None]
  - C-REACTIVE PROTEIN INCREASED [None]
